FAERS Safety Report 19237533 (Version 1)
Quarter: 2021Q2

REPORT INFORMATION
  Report Type: Spontaneous
  Country: US (occurrence: US)
  Receive Date: 20210509
  Receipt Date: 20210509
  Transmission Date: 20210717
  Serious: Yes (Hospitalization)
  Sender: FDA-Public Use
  Company Number: None

PATIENT
  Age: 73 Year
  Sex: Female
  Weight: 53.8 kg

DRUGS (14)
  1. QUETIAPINE 300MG [Concomitant]
     Active Substance: QUETIAPINE
  2. TRAMADOL 50MG [Concomitant]
     Active Substance: TRAMADOL
  3. MIRTAZAPINE 45MG [Concomitant]
     Active Substance: MIRTAZAPINE
  4. KLOR?CON M20 [Concomitant]
     Active Substance: POTASSIUM CHLORIDE
  5. ALPRAZOLAM 0.5MG [Concomitant]
     Active Substance: ALPRAZOLAM
  6. WARFARIN [Suspect]
     Active Substance: WARFARIN
     Dates: start: 20140822, end: 20200420
  7. NEXIUM [Concomitant]
     Active Substance: ESOMEPRAZOLE MAGNESIUM
  8. MEMANTINE 21MG [Concomitant]
  9. FERROUS SULFAST 325MG [Concomitant]
  10. FUROSEMIDE 40MG [Concomitant]
     Active Substance: FUROSEMIDE
  11. SULFASALAZINE 500MG [Concomitant]
     Active Substance: SULFASALAZINE
  12. TORSEMIDE 20MG [Concomitant]
     Active Substance: TORSEMIDE
  13. LEVOTHYROXINE 112 MCG [Concomitant]
     Active Substance: LEVOTHYROXINE
  14. PREDNISONE 10MG [Concomitant]
     Active Substance: PREDNISONE

REACTIONS (3)
  - International normalised ratio increased [None]
  - Faeces discoloured [None]
  - Occult blood positive [None]

NARRATIVE: CASE EVENT DATE: 20200420
